FAERS Safety Report 7794386-8 (Version None)
Quarter: 2011Q4

REPORT INFORMATION
  Report Type: 
  Country: None (occurrence: None)
  Receive Date: 20111004
  Receipt Date: 20110922
  Transmission Date: 20120403
  Serious: Yes (Other)
  Sender: FDA-Public Use
  Company Number: US-BAYER-2011-084624

PATIENT
  Sex: Female

DRUGS (1)
  1. MIRENA [Suspect]
     Indication: MENORRHAGIA
     Dosage: 20 MCG/24HR, CONT
     Dates: start: 20110721, end: 20110912

REACTIONS (15)
  - PORPHYRIA NON-ACUTE [None]
  - BLISTER [None]
  - HYPERTRICHOSIS [None]
  - SWELLING [None]
  - FATIGUE [None]
  - VISUAL IMPAIRMENT [None]
  - DEPRESSION [None]
  - HEADACHE [None]
  - FEELING ABNORMAL [None]
  - PRURITUS [None]
  - BACK PAIN [None]
  - WEIGHT DECREASED [None]
  - LOSS OF LIBIDO [None]
  - PAIN IN EXTREMITY [None]
  - VAGINAL DISCHARGE [None]
